FAERS Safety Report 4532258-2 (Version None)
Quarter: 2004Q4

REPORT INFORMATION
  Report Type: 
  Country: None (occurrence: None)
  Receive Date: 20041220
  Receipt Date: 20041210
  Transmission Date: 20050328
  Serious: Yes (Other)
  Sender: FDA-Public Use
  Company Number: DE-ABBOTT-04P-062-0283047-00

PATIENT
  Age: 6 Week
  Sex: Male
  Weight: 3.8 kg

DRUGS (7)
  1. SEVOFLURANE (SEVOFLURANE LIQUID FOR INHALATION) [Suspect]
     Indication: ANAESTHESIA
     Dosage: 1.5 MINIMUM ALVEOLAR CONCENTRATION
     Route: 055
  2. OXYGEN [Concomitant]
     Indication: ANAESTHESIA
     Route: 055
  3. NITROUS OXIDE [Concomitant]
     Indication: ANAESTHESIA
     Route: 055
  4. 2.5% GLUCOSE IN RINGER'S SOLUTION [Concomitant]
     Indication: DRUG USE FOR UNKNOWN INDICATION
     Dosage: 40 MILLILITERS PER HOUR
  5. ATROPINE [Concomitant]
     Indication: DRUG USE FOR UNKNOWN INDICATION
     Dosage: 0.03 MILLIGRAMS
  6. METHOHEXITAL [Concomitant]
     Indication: DRUG USE FOR UNKNOWN INDICATION
  7. TRAMADOL HCL [Concomitant]
     Indication: DRUG USE FOR UNKNOWN INDICATION

REACTIONS (4)
  - ANTICHOLINERGIC SYNDROME [None]
  - DELAYED RECOVERY FROM ANAESTHESIA [None]
  - MENTAL STATUS CHANGES POSTOPERATIVE [None]
  - SOMNOLENCE [None]
